FAERS Safety Report 8848115 (Version 2)
Quarter: 2012Q4

REPORT INFORMATION
  Report Type: 
  Country: US (occurrence: US)
  Receive Date: 20121018
  Receipt Date: 20121116
  Transmission Date: 20130627
  Serious: No
  Sender: FDA-Public Use
  Company Number: US-VERTEX PHARMACEUTICAL INC.-2012-022212

PATIENT
  Sex: Male

DRUGS (3)
  1. VX-950 (TELAPREVIR) [Suspect]
     Indication: HEPATITIS C
     Dosage: UNK
     Route: 048
     Dates: start: 20120803, end: 20120901
  2. PEGASYS [Concomitant]
     Indication: HEPATITIS C
     Dosage: UNK
     Dates: start: 20120803, end: 20120901
  3. RIBAVIRIN [Concomitant]
     Indication: HEPATITIS C
     Dosage: UNK
     Dates: start: 20120803, end: 20120901

REACTIONS (7)
  - Bedridden [Recovered/Resolved]
  - Insomnia [Unknown]
  - Headache [Unknown]
  - Abdominal discomfort [Unknown]
  - Rash [Unknown]
  - Nausea [Unknown]
  - Vomiting [Recovered/Resolved]
